FAERS Safety Report 5684504-X (Version None)
Quarter: 2008Q1

REPORT INFORMATION
  Report Type: 
  Country: None (occurrence: None)
  Receive Date: 20080328
  Receipt Date: 20080321
  Transmission Date: 20080703
  Serious: Yes (Other)
  Sender: FDA-Public Use
  Company Number: IT-SANOFI-SYNTHELABO-A06200800119

PATIENT
  Age: 59 Year
  Sex: Female

DRUGS (4)
  1. FLUOROURACIL [Concomitant]
     Indication: COLORECTAL CANCER
     Route: 040
  2. FLUOROURACIL [Concomitant]
     Route: 041
  3. OXALIPLATIN [Suspect]
     Indication: COLORECTAL CANCER
     Route: 041
  4. FOLINIC ACID [Concomitant]
     Indication: COLORECTAL CANCER
     Route: 041

REACTIONS (9)
  - COMA [None]
  - DIPLOPIA [None]
  - DYSARTHRIA [None]
  - ELECTROLYTE IMBALANCE [None]
  - LETHARGY [None]
  - LOSS OF CONSCIOUSNESS [None]
  - MUSCULAR WEAKNESS [None]
  - PARAESTHESIA [None]
  - RESPIRATORY DISTRESS [None]
